FAERS Safety Report 25069255 (Version 1)
Quarter: 2025Q1

REPORT INFORMATION
  Report Type: Spontaneous
  Country: GB (occurrence: GB)
  Receive Date: 20250312
  Receipt Date: 20250312
  Transmission Date: 20250409
  Serious: Yes (Other)
  Sender: MYLAN
  Company Number: GB-MHRA-TPP19743068C11168560YC1741012519610

PATIENT
  Age: 69 Year
  Sex: Male
  Weight: 81 kg

DRUGS (24)
  1. ATORVASTATIN [Suspect]
     Active Substance: ATORVASTATIN
     Indication: Blood cholesterol increased
     Dosage: 20 MILLIGRAM, PM (EACH EVENING)
     Dates: start: 20240919
  2. ATORVASTATIN [Suspect]
     Active Substance: ATORVASTATIN
     Dosage: 20 MILLIGRAM, PM (EACH EVENING)
     Route: 048
     Dates: start: 20240919
  3. ATORVASTATIN [Suspect]
     Active Substance: ATORVASTATIN
     Dosage: 20 MILLIGRAM, PM (EACH EVENING)
     Route: 048
     Dates: start: 20240919
  4. ATORVASTATIN [Suspect]
     Active Substance: ATORVASTATIN
     Dosage: 20 MILLIGRAM, PM (EACH EVENING)
     Dates: start: 20240919
  5. AMIODARONE [Concomitant]
     Active Substance: AMIODARONE
     Indication: Atrial fibrillation
     Dosage: 1 DOSAGE FORM, QD (TAKE ONE DAILY FOR ATRIAL FIBRILLATION)
     Dates: start: 20240919
  6. AMIODARONE [Concomitant]
     Active Substance: AMIODARONE
     Dosage: 1 DOSAGE FORM, QD (TAKE ONE DAILY FOR ATRIAL FIBRILLATION)
     Route: 065
     Dates: start: 20240919
  7. AMIODARONE [Concomitant]
     Active Substance: AMIODARONE
     Dosage: 1 DOSAGE FORM, QD (TAKE ONE DAILY FOR ATRIAL FIBRILLATION)
     Route: 065
     Dates: start: 20240919
  8. AMIODARONE [Concomitant]
     Active Substance: AMIODARONE
     Dosage: 1 DOSAGE FORM, QD (TAKE ONE DAILY FOR ATRIAL FIBRILLATION)
     Dates: start: 20240919
  9. DAPAGLIFLOZIN [Concomitant]
     Active Substance: DAPAGLIFLOZIN
     Indication: Cardiac failure
     Dosage: 1 DOSAGE FORM, QD (TAKE ONE DAILY FOR HEART FAILURE)
     Dates: start: 20240919
  10. DAPAGLIFLOZIN [Concomitant]
     Active Substance: DAPAGLIFLOZIN
     Dosage: 1 DOSAGE FORM, QD (TAKE ONE DAILY FOR HEART FAILURE)
     Route: 065
     Dates: start: 20240919
  11. DAPAGLIFLOZIN [Concomitant]
     Active Substance: DAPAGLIFLOZIN
     Dosage: 1 DOSAGE FORM, QD (TAKE ONE DAILY FOR HEART FAILURE)
     Route: 065
     Dates: start: 20240919
  12. DAPAGLIFLOZIN [Concomitant]
     Active Substance: DAPAGLIFLOZIN
     Dosage: 1 DOSAGE FORM, QD (TAKE ONE DAILY FOR HEART FAILURE)
     Dates: start: 20240919
  13. EDOXABAN [Concomitant]
     Active Substance: EDOXABAN
     Indication: Prophylaxis
     Dosage: 1 DOSAGE FORM, AM (TAKE ONE IN THE MORNING TO PREVENT STROKE)
     Dates: start: 20240919
  14. EDOXABAN [Concomitant]
     Active Substance: EDOXABAN
     Dosage: 1 DOSAGE FORM, AM (TAKE ONE IN THE MORNING TO PREVENT STROKE)
     Route: 065
     Dates: start: 20240919
  15. EDOXABAN [Concomitant]
     Active Substance: EDOXABAN
     Dosage: 1 DOSAGE FORM, AM (TAKE ONE IN THE MORNING TO PREVENT STROKE)
     Route: 065
     Dates: start: 20240919
  16. EDOXABAN [Concomitant]
     Active Substance: EDOXABAN
     Dosage: 1 DOSAGE FORM, AM (TAKE ONE IN THE MORNING TO PREVENT STROKE)
     Dates: start: 20240919
  17. LANSOPRAZOLE [Concomitant]
     Active Substance: LANSOPRAZOLE
     Indication: Prophylaxis
     Dosage: 1 DOSAGE FORM, QD (TAKE ONE ONCE DAILY TO PROTECT YOUR STOMACH)
     Dates: start: 20240919
  18. LANSOPRAZOLE [Concomitant]
     Active Substance: LANSOPRAZOLE
     Dosage: 1 DOSAGE FORM, QD (TAKE ONE ONCE DAILY TO PROTECT YOUR STOMACH)
     Route: 065
     Dates: start: 20240919
  19. LANSOPRAZOLE [Concomitant]
     Active Substance: LANSOPRAZOLE
     Dosage: 1 DOSAGE FORM, QD (TAKE ONE ONCE DAILY TO PROTECT YOUR STOMACH)
     Route: 065
     Dates: start: 20240919
  20. LANSOPRAZOLE [Concomitant]
     Active Substance: LANSOPRAZOLE
     Dosage: 1 DOSAGE FORM, QD (TAKE ONE ONCE DAILY TO PROTECT YOUR STOMACH)
     Dates: start: 20240919
  21. SPIRONOLACTONE [Concomitant]
     Active Substance: SPIRONOLACTONE
     Indication: Cardiac failure
     Dosage: 1 DOSAGE FORM, QD (TAKE ONE DAILY FOR HEART FAILURE)
     Dates: start: 20250115
  22. SPIRONOLACTONE [Concomitant]
     Active Substance: SPIRONOLACTONE
     Dosage: 1 DOSAGE FORM, QD (TAKE ONE DAILY FOR HEART FAILURE)
     Route: 065
     Dates: start: 20250115
  23. SPIRONOLACTONE [Concomitant]
     Active Substance: SPIRONOLACTONE
     Dosage: 1 DOSAGE FORM, QD (TAKE ONE DAILY FOR HEART FAILURE)
     Route: 065
     Dates: start: 20250115
  24. SPIRONOLACTONE [Concomitant]
     Active Substance: SPIRONOLACTONE
     Dosage: 1 DOSAGE FORM, QD (TAKE ONE DAILY FOR HEART FAILURE)
     Dates: start: 20250115

REACTIONS (2)
  - Confusional state [Recovered/Resolved]
  - Brain fog [Recovered/Resolved]
